FAERS Safety Report 5918246-X (Version None)
Quarter: 2008Q4

REPORT INFORMATION
  Report Type: 
  Country: None (occurrence: None)
  Receive Date: 20081014
  Receipt Date: 20081006
  Transmission Date: 20090506
  Serious: Yes (Hospitalization)
  Sender: FDA-Public Use
  Company Number: US-GENENTECH-269361

PATIENT
  Sex: Female
  Weight: 82.4 kg

DRUGS (13)
  1. BLINDED ANTI-CD40 [Suspect]
     Indication: DIFFUSE LARGE B-CELL LYMPHOMA
     Dosage: 8 MG/KG, 1/WEEK
     Route: 042
     Dates: start: 20080820, end: 20080917
  2. BLINDED PLACEBO [Suspect]
     Indication: DIFFUSE LARGE B-CELL LYMPHOMA
     Dosage: 8 MG/KG, 1/WEEK
     Route: 042
     Dates: start: 20080820, end: 20080917
  3. BLINDED ANTI-CD40 [Suspect]
     Dosage: 2 MG/KG, SINGLE
     Route: 042
     Dates: start: 20080812, end: 20080812
  4. BLINDED PLACEBO [Suspect]
     Dosage: 2 MG/KG, SINGLE
     Route: 042
     Dates: start: 20080812, end: 20080812
  5. BLINDED ANTI-CD40 [Suspect]
     Dosage: 4 MG/KG, SINGLE
     Route: 042
     Dates: start: 20080815, end: 20080815
  6. BLINDED PLACEBO [Suspect]
     Dosage: 4 MG/KG, SINGLE
     Route: 042
     Dates: start: 20080815, end: 20080815
  7. RITUXAN [Suspect]
     Indication: DIFFUSE LARGE B-CELL LYMPHOMA
     Dosage: 375 MG/M2, Q3W
     Route: 042
     Dates: start: 20080811, end: 20080903
  8. IFOSFAMIDE [Suspect]
     Indication: DIFFUSE LARGE B-CELL LYMPHOMA
     Dosage: 5000 MG/M2, Q3W
     Route: 042
     Dates: start: 20080814, end: 20080904
  9. CARBOPLATIN [Suspect]
     Indication: DIFFUSE LARGE B-CELL LYMPHOMA
     Dosage: 5 MG/ML, Q3W
     Route: 042
     Dates: start: 20080814, end: 20080904
  10. ETOPOSIDE [Suspect]
     Indication: DIFFUSE LARGE B-CELL LYMPHOMA
     Dosage: 100 MG/M2, Q3W
     Route: 042
     Dates: start: 20080813, end: 20080903
  11. ETOPOSIDE [Suspect]
     Dosage: 100 MG/M2, Q3W
     Route: 042
     Dates: start: 20080814, end: 20080904
  12. ETOPOSIDE [Suspect]
     Dosage: 100 MG/M2, Q3W
     Route: 042
     Dates: start: 20080815, end: 20080905
  13. IV FLUIDS (TYPE UNKNOWN) [Suspect]

REACTIONS (1)
  - DEHYDRATION [None]
